FAERS Safety Report 5511171-8 (Version None)
Quarter: 2007Q4

REPORT INFORMATION
  Report Type: 
  Country: None (occurrence: None)
  Receive Date: 20071109
  Receipt Date: 20071102
  Transmission Date: 20080405
  Serious: Yes (Hospitalization)
  Sender: FDA-Public Use
  Company Number: CA-ASTRAZENECA-2007UW25893

PATIENT
  Age: 66 Year
  Sex: Male

DRUGS (6)
  1. CASODEX [Suspect]
     Indication: PROSTATE CANCER
     Route: 048
     Dates: start: 20071012
  2. RAMIPRIL [Concomitant]
     Indication: HYPERTENSION
     Route: 048
  3. METOPROLOL TARTRATE [Concomitant]
     Indication: HYPERTENSION
     Route: 048
  4. LIPITOR [Concomitant]
     Indication: DYSLIPIDAEMIA
     Route: 048
  5. PLAVIX [Concomitant]
     Indication: ANTIPLATELET THERAPY
     Route: 048
  6. ASPIRIN [Concomitant]
     Indication: ANTIPLATELET THERAPY
     Route: 048

REACTIONS (3)
  - FUNGAL INFECTION [None]
  - MOUTH ULCERATION [None]
  - STEVENS-JOHNSON SYNDROME [None]
